FAERS Safety Report 21993896 (Version 1)
Quarter: 2023Q1

REPORT INFORMATION
  Report Type: Spontaneous
  Country: US (occurrence: US)
  Receive Date: 20230215
  Receipt Date: 20230215
  Transmission Date: 20230418
  Serious: Yes (Other)
  Sender: FDA-Public Use
  Company Number: US-drreddys-LIT/USA/23/0160978

PATIENT
  Age: 75 Year
  Sex: Male

DRUGS (1)
  1. LEVOFLOXACIN [Suspect]
     Active Substance: LEVOFLOXACIN
     Indication: COVID-19

REACTIONS (6)
  - COVID-19 pneumonia [Recovering/Resolving]
  - Leukopenia [Recovering/Resolving]
  - Thrombocytopenia [Recovering/Resolving]
  - Inflammatory marker increased [Recovering/Resolving]
  - Cough [Recovering/Resolving]
  - Drug ineffective for unapproved indication [Unknown]

NARRATIVE: CASE EVENT DATE: 20200601
